FAERS Safety Report 22139284 (Version 5)
Quarter: 2023Q4

REPORT INFORMATION
  Report Type: Spontaneous
  Country: DE (occurrence: DE)
  Receive Date: 20230327
  Receipt Date: 20231112
  Transmission Date: 20240109
  Serious: Yes (Other)
  Sender: FDA-Public Use
  Company Number: DE-002147023-NVSC2023DE064300

PATIENT
  Age: 67 Year
  Sex: Female

DRUGS (2)
  1. AIMOVIG [Suspect]
     Active Substance: ERENUMAB-AOOE
     Indication: Migraine
     Dosage: 140 MG
     Route: 065
     Dates: start: 2020, end: 202210
  2. AIMOVIG [Suspect]
     Active Substance: ERENUMAB-AOOE
     Dosage: 140 MG
     Route: 065
     Dates: start: 202211, end: 2023

REACTIONS (8)
  - Amaurosis fugax [Recovered/Resolved]
  - Amaurosis fugax [Recovered/Resolved]
  - Aura [Recovering/Resolving]
  - Transient ischaemic attack [Unknown]
  - Sleep disorder [Recovered/Resolved]
  - Constipation [Recovering/Resolving]
  - Migraine [Recovered/Resolved]
  - Migraine [Not Recovered/Not Resolved]

NARRATIVE: CASE EVENT DATE: 20200101
